FAERS Safety Report 5402706-4 (Version None)
Quarter: 2007Q3

REPORT INFORMATION
  Report Type: 
  Country: None (occurrence: None)
  Receive Date: 20070801
  Receipt Date: 20070727
  Transmission Date: 20080115
  Serious: Yes (Other)
  Sender: FDA-Public Use
  Company Number: B0481479A

PATIENT
  Age: 40 Year
  Sex: Male

DRUGS (3)
  1. LAMIVUDINE [Suspect]
     Indication: HIV INFECTION
  2. ZERIT [Suspect]
     Indication: HIV INFECTION
  3. SAQUINAVIR [Suspect]
     Indication: HIV INFECTION

REACTIONS (1)
  - HEPATOTOXICITY [None]
